FAERS Safety Report 17188164 (Version 1)
Quarter: 2019Q4

REPORT INFORMATION
  Report Type: Spontaneous
  Country: NL (occurrence: NL)
  Receive Date: 20191221
  Receipt Date: 20191221
  Transmission Date: 20200122
  Serious: Yes (Hospitalization)
  Sender: FDA-Public Use
  Company Number: NL-TEVA-2019-NL-1154579

PATIENT
  Age: 30 Year
  Sex: Female
  Weight: 63 kg

DRUGS (1)
  1. LAMOTRIGINE TABLET, 50 MG (MILLIGRAM) [Suspect]
     Active Substance: LAMOTRIGINE
     Indication: EPILEPSY
     Dosage: 1X DAILY, DOSAGE DECREASING AND INCREASING FROM 50 TO 200 MG
     Dates: start: 201708, end: 20190301

REACTIONS (3)
  - Dysmenorrhoea [Recovering/Resolving]
  - Fallopian tube perforation [Recovered/Resolved]
  - Ovulation pain [Recovered/Resolved]

NARRATIVE: CASE EVENT DATE: 20180305
